FAERS Safety Report 20734812 (Version 5)
Quarter: 2023Q1

REPORT INFORMATION
  Report Type: Report from Study
  Country: US (occurrence: US)
  Receive Date: 20220421
  Receipt Date: 20230110
  Transmission Date: 20230418
  Serious: Yes (Hospitalization, Other)
  Sender: FDA-Public Use
  Company Number: US-002147023-NVSC2022US090244

PATIENT
  Age: 62 Year
  Sex: Female
  Weight: 72.109 kg

DRUGS (5)
  1. TREPROSTINIL [Suspect]
     Active Substance: TREPROSTINIL
     Indication: Pulmonary arterial hypertension
     Dosage: 31 NG/KG/MIN, CONT (1 MG/ML)
     Route: 042
     Dates: start: 20211110
  2. TREPROSTINIL [Suspect]
     Active Substance: TREPROSTINIL
     Dosage: (50 NG/KG/ MIN, CONTINUOUS) (2.5 MG/ML)
     Route: 042
  3. TREPROSTINIL [Suspect]
     Active Substance: TREPROSTINIL
     Dosage: (50 NG/KG/ MIN, CONTINUOUS) (2.5 MG/ML)
     Route: 042
  4. TADALAFIL [Concomitant]
     Active Substance: TADALAFIL
     Indication: Product used for unknown indication
     Dosage: UNK
     Route: 065
  5. AMLODIPINE [Concomitant]
     Active Substance: AMLODIPINE BESYLATE
     Indication: Product used for unknown indication
     Dosage: UNK
     Route: 065

REACTIONS (3)
  - Aspiration [Recovered/Resolved]
  - Pulmonary hypertension [Unknown]
  - Malaise [Unknown]

NARRATIVE: CASE EVENT DATE: 20221219
